FAERS Safety Report 13812746 (Version 2)
Quarter: 2017Q3

REPORT INFORMATION
  Report Type: Spontaneous
  Country: GR (occurrence: GR)
  Receive Date: 20170729
  Receipt Date: 20170809
  Transmission Date: 20171127
  Serious: Yes (Other)
  Sender: FDA-Public Use
  Company Number: GR-ROCHE-1969968

PATIENT
  Age: 80 Year
  Sex: Male

DRUGS (2)
  1. ACTILYSE [Suspect]
     Active Substance: ALTEPLASE
     Indication: HEMIPARESIS
  2. ACTILYSE [Suspect]
     Active Substance: ALTEPLASE
     Indication: APHASIA
     Route: 042

REACTIONS (5)
  - Unresponsive to stimuli [Unknown]
  - Blood pressure fluctuation [Unknown]
  - Haemorrhagic transformation stroke [Unknown]
  - General physical health deterioration [Unknown]
  - Cerebral haematoma [Unknown]
